FAERS Safety Report 10197924 (Version 1)
Quarter: 2014Q2

REPORT INFORMATION
  Report Type: Spontaneous
  Country: US (occurrence: US)
  Receive Date: 20140527
  Receipt Date: 20140527
  Transmission Date: 20141212
  Serious: No
  Sender: FDA-Public Use
  Company Number: US-NOVEN-13US006705

PATIENT
  Age: 9 Year
  Sex: Female

DRUGS (1)
  1. DAYTRANA [Suspect]
     Indication: ATTENTION DEFICIT/HYPERACTIVITY DISORDER
     Dosage: 20 MG, QD
     Route: 062
     Dates: start: 2012

REACTIONS (8)
  - Weight decreased [Not Recovered/Not Resolved]
  - Decreased appetite [Recovering/Resolving]
  - Abdominal discomfort [Recovered/Resolved]
  - Application site erythema [None]
  - Incorrect drug administration duration [None]
  - Drug ineffective [Recovered/Resolved]
  - Drug dose omission [Recovered/Resolved]
  - Product quality issue [Recovered/Resolved]
